FAERS Safety Report 9838497 (Version 1)
Quarter: 2013Q4

REPORT INFORMATION
  Report Type: Spontaneous
  Country: US (occurrence: None)
  Receive Date: 20131206
  Receipt Date: 20131206
  Transmission Date: 20140711
  Serious: Yes (Hospitalization, Other)
  Sender: FDA-Public Use
  Company Number: 373751

PATIENT
  Sex: Female

DRUGS (1)
  1. NOVOLOG [Suspect]
     Indication: DIABETES MELLITUS
     Dosage: SUBCUTAN.-PUMP

REACTIONS (5)
  - Drug ineffective [None]
  - Suspected counterfeit product [None]
  - Product formulation issue [None]
  - Product odour abnormal [None]
  - Diabetic ketoacidosis [None]
